FAERS Safety Report 18235700 (Version 1)
Quarter: 2020Q3

REPORT INFORMATION
  Report Type: Report from Study
  Country: IT (occurrence: IT)
  Receive Date: 20200905
  Receipt Date: 20200905
  Transmission Date: 20201103
  Serious: Yes (Other)
  Sender: FDA-Public Use
  Company Number: IT-ACCORD-199249

PATIENT
  Age: 29 Year
  Sex: Female

DRUGS (4)
  1. ESOMEPRAZOLE/ESOMEPRAZOLE MAGNESIUM/ESOMEPRAZOLE SODIUM [Suspect]
     Active Substance: ESOMEPRAZOLE
     Route: 048
     Dates: start: 20200712, end: 20200712
  2. FLUIFORT (CARBOCISTEINE LYSINE) [Suspect]
     Active Substance: CARBOCYSTEINE LYSINE
     Dosage: STRENGTH: 2.7 G GRANULES FOR ORAL SOLUTION
     Route: 048
     Dates: start: 20200712, end: 20200712
  3. KETODOL (KETOPROFEN\SUCRALFATE) [Suspect]
     Active Substance: KETOPROFEN\SUCRALFATE
     Dosage: STRENGTH: 25 MG + 200 MG
     Route: 048
     Dates: start: 20200712, end: 20200712
  4. OKI [Suspect]
     Active Substance: KETOPROFEN LYSINE
     Dosage: STRENGTH: 80 MG GRANULES FOR ORAL SOLUTION
     Route: 048
     Dates: start: 20200712, end: 20200712

REACTIONS (3)
  - Psychomotor hyperactivity [Recovering/Resolving]
  - Drug abuse [Unknown]
  - Abdominal pain [Recovering/Resolving]

NARRATIVE: CASE EVENT DATE: 20200712
